FAERS Safety Report 18747185 (Version 1)
Quarter: 2021Q1

REPORT INFORMATION
  Report Type: Spontaneous
  Country: US (occurrence: US)
  Receive Date: 20210115
  Receipt Date: 20210115
  Transmission Date: 20210419
  Serious: No
  Sender: FDA-Public Use
  Company Number: US-PFIZER INC-2021015715

PATIENT
  Sex: Female

DRUGS (1)
  1. XANAX [Suspect]
     Active Substance: ALPRAZOLAM
     Dosage: 2 MG

REACTIONS (4)
  - Crying [Unknown]
  - Panic reaction [Unknown]
  - Product colour issue [Unknown]
  - Intentional dose omission [Unknown]
